FAERS Safety Report 8493714-8 (Version None)
Quarter: 2012Q3

REPORT INFORMATION
  Report Type: 
  Country: None (occurrence: None)
  Receive Date: 20120706
  Receipt Date: 20120621
  Transmission Date: 20120928
  Serious: No
  Sender: FDA-Public Use
  Company Number: US-ASTRAZENECA-2012SE42333

PATIENT
  Age: 69 Year
  Sex: Male
  Weight: 68.9 kg

DRUGS (1)
  1. NEXIUM [Suspect]
     Indication: GASTROOESOPHAGEAL REFLUX DISEASE
     Dosage: 40 MG DELAYED RELEASE CAPSULE ONCE A DAY 1 HOUR BEFORE BREAKFAST
     Route: 048
     Dates: start: 20100201

REACTIONS (1)
  - LIVER FUNCTION TEST ABNORMAL [None]
